FAERS Safety Report 9559610 (Version 1)
Quarter: 2013Q3

REPORT INFORMATION
  Report Type: Spontaneous
  Country: US (occurrence: None)
  Receive Date: 20130925
  Receipt Date: 20130925
  Transmission Date: 20140515
  Serious: Yes (Hospitalization)
  Sender: FDA-Public Use
  Company Number: UTC-038181

PATIENT
  Age: 50 Year
  Sex: Female
  Weight: 58.6 kg

DRUGS (2)
  1. REMODULIN [Suspect]
     Indication: PULMONARY ARTERIAL HYPERTENSION
     Dosage: 128.16 UG/KG (0.089 UG/KG, 1 IN 1 MIN), SUBCUTANEOUS
     Route: 058
     Dates: start: 20070206
  2. TYVASO [Suspect]
     Indication: PULMONARY ARTERIAL HYPERTENSION
     Dosage: 18 TO 54 MICROGRAMS (4 IN 1 D) INHALATION
     Route: 055
     Dates: start: 20130823

REACTIONS (3)
  - Ventricular tachycardia [None]
  - Overdose [None]
  - Feeling abnormal [None]
